FAERS Safety Report 5266932-X (Version None)
Quarter: 2007Q1

REPORT INFORMATION
  Report Type: 
  Country: None (occurrence: None)
  Receive Date: 20070316
  Receipt Date: 20070306
  Transmission Date: 20070707
  Serious: Yes (Hospitalization)
  Sender: FDA-Public Use
  Company Number: JP-JNJFOC-20070301488

PATIENT
  Sex: Female
  Weight: 45 kg

DRUGS (20)
  1. REMICADE [Suspect]
     Route: 042
  2. REMICADE [Suspect]
     Route: 042
  3. REMICADE [Suspect]
     Route: 042
  4. REMICADE [Suspect]
     Route: 042
  5. REMICADE [Suspect]
     Route: 042
  6. REMICADE [Suspect]
     Route: 042
  7. REMICADE [Suspect]
     Indication: CROHN'S DISEASE
     Route: 042
  8. PREDONINE [Suspect]
     Indication: CROHN'S DISEASE
     Route: 048
  9. PREDNISOLONE [Suspect]
     Indication: CROHN'S DISEASE
     Route: 048
  10. IMURAN [Concomitant]
     Indication: CROHN'S DISEASE
     Route: 048
  11. ENSURE [Concomitant]
     Indication: CROHN'S DISEASE
     Route: 048
  12. GASTER D [Concomitant]
     Route: 048
  13. RIZE [Concomitant]
     Route: 048
  14. MYSLEE [Concomitant]
     Route: 048
  15. CALCIUM LACTATE [Concomitant]
     Route: 048
  16. ONEALFA [Concomitant]
     Route: 048
  17. NEUROVITAN [Concomitant]
     Route: 048
  18. SELBEX [Concomitant]
     Route: 048
  19. DEPAS [Concomitant]
     Route: 048
  20. ASPIRIN [Concomitant]
     Indication: VASCULITIS
     Route: 048

REACTIONS (1)
  - APPENDICITIS [None]
